FAERS Safety Report 6640558-5 (Version None)
Quarter: 2010Q1

REPORT INFORMATION
  Report Type: 
  Country: None (occurrence: None)
  Receive Date: 20100318
  Receipt Date: 20100315
  Transmission Date: 20100710
  Serious: Yes (Life-Threatening, Hospitalization)
  Sender: FDA-Public Use
  Company Number: US-ELI_LILLY_AND_COMPANY-US201003003943

PATIENT
  Sex: Male
  Weight: 76.8 kg

DRUGS (2)
  1. PEMETREXED [Suspect]
     Indication: LUNG NEOPLASM MALIGNANT
     Dosage: 500 MG/M2, OTHER
     Route: 042
     Dates: start: 20091109
  2. CISPLATIN [Suspect]
     Indication: LUNG NEOPLASM MALIGNANT
     Dosage: 75 MG/M2, OTHER
     Route: 042
     Dates: start: 20091109

REACTIONS (1)
  - CEREBROVASCULAR ACCIDENT [None]
